FAERS Safety Report 17940254 (Version 1)
Quarter: 2020Q2

REPORT INFORMATION
  Report Type: Spontaneous
  Country: SK (occurrence: SK)
  Receive Date: 20200624
  Receipt Date: 20200624
  Transmission Date: 20200714
  Serious: Yes (Hospitalization)
  Sender: FDA-Public Use
  Company Number: SK-MYLANLABS-2020M1057571

PATIENT
  Age: 56 Year
  Sex: Female
  Weight: 49 kg

DRUGS (19)
  1. DORETA [Concomitant]
     Active Substance: ACETAMINOPHEN\TRAMADOL HYDROCHLORIDE
     Dosage: 1 DOSAGE FORM, BID (1-0-1)
     Route: 048
     Dates: start: 20200329
  2. CALTRATE                           /00944201/ [Concomitant]
     Active Substance: CALCIUM CARBONATE\CHOLECALCIFEROL
     Dosage: 1 DOSAGE FORM, QD (1-0-0)
     Route: 048
     Dates: start: 20200330
  3. FLUCONAZOLE. [Concomitant]
     Active Substance: FLUCONAZOLE
     Indication: FUNGAL INFECTION
     Dosage: 100 MILLIGRAM, QD (1-0-0)
     Route: 042
     Dates: start: 20200328, end: 20200406
  4. ALBUNORM [Concomitant]
     Active Substance: ALBUMIN HUMAN
     Dosage: 1 DOSAGE FORM, QD (ALBUNORM 20 %)
     Route: 042
     Dates: start: 20200328, end: 20200330
  5. SODIUM CHLORIDE. [Concomitant]
     Active Substance: SODIUM CHLORIDE
     Dosage: SODIUM CHLORIDE 0.9% AND SODIUM CHLORIDE 10% (2 AMPOULE, 1-0-1)
     Dates: start: 20200328
  6. FENTANYL. [Concomitant]
     Active Substance: FENTANYL
     Dosage: 1 DOSAGE FORM, Q3D
     Dates: start: 20200405
  7. KIOVIG [Concomitant]
     Active Substance: HUMAN IMMUNOGLOBULIN G
     Dosage: 1 DOSAGE FORM, QD (1-0-0)
     Route: 042
     Dates: start: 20200329, end: 20200402
  8. CARDILAN                           /06428001/ [Concomitant]
     Dosage: 1 DOSAGE FORM, TID (1-1-1, LONG-TERM)
     Route: 048
  9. NOLPAZA [Concomitant]
     Active Substance: PANTOPRAZOLE SODIUM
     Dosage: 20 MILLIGRAM, QD (1-0-0, LONG-TERM)
     Route: 048
  10. ZARZIO [Concomitant]
     Active Substance: FILGRASTIM
     Dosage: 1 DOSAGE FORM, QD (1-0-0)
     Route: 058
     Dates: start: 20200328, end: 20200403
  11. FRAXIPARINE FORTE [Concomitant]
     Active Substance: NADROPARIN CALCIUM
     Indication: PHLEBITIS DEEP
     Dosage: 0.6 MILLILITER, QD (1-0-0, LONG-TERM)
     Route: 058
  12. NOVALGIN (METAMIZOLE SODIUM) [Concomitant]
     Active Substance: METAMIZOLE SODIUM
     Dosage: 500 MILLIGRAM, BID (1-0-1)
     Route: 048
     Dates: start: 20200328
  13. SODIUM CHLORIDE. [Concomitant]
     Active Substance: SODIUM CHLORIDE
     Dosage: 500 MILLILITER
  14. HYLAK FORTE [Concomitant]
     Dosage: 30-30-30 (GTT POR)
     Route: 048
  15. PIPERACILLIN/TAZOBACTAM [Suspect]
     Active Substance: PIPERACILLIN SODIUM\TAZOBACTAM SODIUM
     Indication: FEBRILE NEUTROPENIA
     Dosage: 1 DOSAGE FORM, Q6H (1-1-1-1)
     Route: 042
     Dates: start: 20200328, end: 20200406
  16. LAGOSA [Concomitant]
     Active Substance: DIETARY SUPPLEMENT\HERBALS\MILK THISTLE
     Dosage: 150 MILLIGRAM, BID (1-0-1)
     Route: 048
     Dates: start: 20200328
  17. PREDNISONE. [Concomitant]
     Active Substance: PREDNISONE
     Indication: HAEMOLYTIC ANAEMIA
     Dosage: 10MG - 10MG - 5MG, LONG-TERM
     Route: 048
  18. ASCORBIC ACID. [Concomitant]
     Active Substance: ASCORBIC ACID
     Dosage: INTO SODIUM CHLORIDE 0.9%
  19. FRAXIPARINE FORTE [Concomitant]
     Active Substance: NADROPARIN CALCIUM
     Indication: DEEP VEIN THROMBOSIS

REACTIONS (1)
  - Toxic skin eruption [Recovered/Resolved]

NARRATIVE: CASE EVENT DATE: 20200403
